FAERS Safety Report 4742603-0 (Version None)
Quarter: 2005Q3

REPORT INFORMATION
  Report Type: 
  Country: None (occurrence: None)
  Receive Date: 20050811
  Receipt Date: 20050316
  Transmission Date: 20060218
  Serious: Yes (Hospitalization)
  Sender: FDA-Public Use
  Company Number: CA-SANOFI-SYNTHELABO-F01200500417

PATIENT
  Sex: Male

DRUGS (11)
  1. OXALIPLATIN [Suspect]
     Indication: COLORECTAL CANCER METASTATIC
     Route: 042
     Dates: start: 20050224, end: 20050224
  2. FLUOROURACIL [Suspect]
     Indication: COLORECTAL CANCER METASTATIC
     Route: 042
     Dates: start: 20050224, end: 20050224
  3. LEUCOVORIN [Suspect]
     Indication: COLORECTAL CANCER METASTATIC
     Route: 042
     Dates: start: 20050224, end: 20050224
  4. BEVACIZUMAB OR PLACEBO [Suspect]
     Indication: COLORECTAL CANCER METASTATIC
     Route: 042
     Dates: start: 20050224, end: 20050224
  5. HEPARIN LOCK FLUSH [Concomitant]
     Dosage: UNK
     Route: 065
     Dates: start: 20041129
  6. ZOCOR [Concomitant]
     Dosage: UNK
     Route: 065
  7. METOPROLOL [Concomitant]
     Dosage: UNK
     Route: 065
  8. ASAPHEN [Concomitant]
     Dosage: UNK
     Route: 065
  9. ATIVAN [Concomitant]
     Dosage: UNK
     Route: 065
  10. ZOFRAN [Concomitant]
     Dosage: UNK
     Route: 065
  11. MOUTHWASH [Concomitant]
     Dosage: UNK
     Route: 065

REACTIONS (1)
  - GENERAL PHYSICAL HEALTH DETERIORATION [None]
